FAERS Safety Report 7296453-4 (Version None)
Quarter: 2011Q1

REPORT INFORMATION
  Report Type: 
  Country: None (occurrence: None)
  Receive Date: 20110216
  Receipt Date: 20110207
  Transmission Date: 20110831
  Serious: Yes (Hospitalization, Disabling)
  Sender: FDA-Public Use
  Company Number: US-ASTRAZENECA-2011SE07442

PATIENT
  Age: 626 Month
  Sex: Male
  Weight: 85.7 kg

DRUGS (6)
  1. SEROQUEL [Suspect]
     Route: 048
  2. AN ANXIETY MEDICATION [Concomitant]
     Route: 065
  3. TRAMADOL [Concomitant]
     Route: 065
  4. PAXIL [Concomitant]
     Route: 065
  5. SEROQUEL [Suspect]
     Indication: BIPOLAR DISORDER
     Route: 048
  6. LORTAB [Concomitant]
     Route: 065

REACTIONS (8)
  - TRAUMATIC BRAIN INJURY [None]
  - AMNESIA [None]
  - BLINDNESS UNILATERAL [None]
  - HEMIPARESIS [None]
  - FATIGUE [None]
  - TOOTH LOSS [None]
  - ASTHENIA [None]
  - ANXIETY [None]
